FAERS Safety Report 6399814-0 (Version None)
Quarter: 2009Q4

REPORT INFORMATION
  Report Type: 
  Country: None (occurrence: None)
  Receive Date: 20091007
  Receipt Date: 20091007
  Transmission Date: 20100525
  Serious: No
  Sender: FDA-Public Use
  Company Number: None

PATIENT
  Age: 66 Year
  Sex: Male
  Weight: 68.0396 kg

DRUGS (2)
  1. TRAZODONE HCL [Suspect]
     Indication: INSOMNIA
     Dosage: ONE@HS QHS PO (ONE NIGHT)
     Route: 048
     Dates: start: 20091003, end: 20091003
  2. TRAZODONE HCL [Suspect]
     Indication: INSOMNIA
     Dosage: THREE@HS QHS PO
     Route: 048
     Dates: start: 20090920, end: 20090927

REACTIONS (5)
  - DRUG EFFECT DELAYED [None]
  - INSOMNIA [None]
  - LETHARGY [None]
  - PRODUCT SUBSTITUTION ISSUE [None]
  - WITHDRAWAL SYNDROME [None]
